FAERS Safety Report 8024717-5 (Version None)
Quarter: 2012Q1

REPORT INFORMATION
  Report Type: 
  Country: None (occurrence: None)
  Receive Date: 20120103
  Receipt Date: 20111222
  Transmission Date: 20120608
  Serious: Yes (Death, Life-Threatening, Hospitalization, Other)
  Sender: FDA-Public Use
  Company Number: 2011MA017987

PATIENT
  Age: 64 Year
  Sex: Male

DRUGS (8)
  1. AMPICILLIN [Suspect]
     Indication: PYREXIA
  2. OMEPRAZOLE [Suspect]
  3. SULBACTAM (SULBACTAM) [Suspect]
     Indication: PYREXIA
  4. NIFEKALANT (NIFEKALANT) [Suspect]
     Indication: VENTRICULAR FIBRILLATION
  5. ASPIRIN [Suspect]
     Indication: ANTIPLATELET THERAPY
     Dosage: 100 MG;QD
  6. DOPAMINE HCL [Suspect]
  7. TICLOPIDINE HYDROCHLORIDE [Suspect]
     Indication: ANTIPLATELET THERAPY
     Dosage: 200 MG;QD
  8. HEPARIN [Suspect]
     Dosage: 10000 U

REACTIONS (10)
  - PYREXIA [None]
  - PLATELET COUNT DECREASED [None]
  - ACUTE RESPIRATORY FAILURE [None]
  - HAEMOPTYSIS [None]
  - DEVICE OCCLUSION [None]
  - PULMONARY ALVEOLAR HAEMORRHAGE [None]
  - VENTRICULAR FIBRILLATION [None]
  - LUNG INFILTRATION [None]
  - CIRCULATORY COLLAPSE [None]
  - BRONCHIAL HAEMORRHAGE [None]
